FAERS Safety Report 23206813 (Version 1)
Quarter: 2023Q4

REPORT INFORMATION
  Report Type: Spontaneous
  Country: PL (occurrence: PL)
  Receive Date: 20231120
  Receipt Date: 20231120
  Transmission Date: 20240110
  Serious: Yes (Hospitalization)
  Sender: FDA-Public Use
  Company Number: PL-TEVA-2023-PL-2946997

PATIENT
  Age: 64 Year
  Sex: Male

DRUGS (11)
  1. SERTRALINE [Interacting]
     Active Substance: SERTRALINE HYDROCHLORIDE
     Indication: Depression
     Dosage: 50 MILLIGRAM DAILY; IN THE MORNING
     Route: 048
  2. SERTRALINE [Interacting]
     Active Substance: SERTRALINE HYDROCHLORIDE
     Indication: Insomnia
  3. MIRTAZAPINE [Interacting]
     Active Substance: MIRTAZAPINE
     Indication: Depression
     Dosage: 15 MILLIGRAM DAILY; AT NIGHT
     Route: 065
  4. MIRTAZAPINE [Interacting]
     Active Substance: MIRTAZAPINE
     Indication: Insomnia
  5. OMEPRAZOLE [Interacting]
     Active Substance: OMEPRAZOLE
     Indication: Gastrooesophageal reflux disease
     Dosage: 40 MILLIGRAM DAILY;
     Route: 048
  6. ACETAMINOPHEN\TRAMADOL [Interacting]
     Active Substance: ACETAMINOPHEN\TRAMADOL
     Indication: Arthralgia
     Dosage: TRAMADOL 75 MG/ PARACETAMOL 650 MG THRICE DAILY
     Route: 048
  7. METAMIZOLE [Suspect]
     Active Substance: METAMIZOLE
     Indication: Arthralgia
     Dosage: 3000 MILLIGRAM DAILY;
     Route: 048
  8. DEXKETOPROFEN [Suspect]
     Active Substance: DEXKETOPROFEN
     Indication: Arthralgia
     Dosage: 150 MILLIGRAM DAILY;
     Route: 048
  9. PREGABALIN [Suspect]
     Active Substance: PREGABALIN
     Indication: Arthralgia
     Dosage: 150 MILLIGRAM DAILY;
     Route: 065
  10. DAPAGLIFLOZIN [Concomitant]
     Active Substance: DAPAGLIFLOZIN
     Indication: Type 2 diabetes mellitus
     Dosage: 10 MILLIGRAM DAILY;
     Route: 065
  11. METFORMIN [Concomitant]
     Active Substance: METFORMIN HYDROCHLORIDE
     Indication: Type 2 diabetes mellitus
     Dosage: 1000 MILLIGRAM DAILY;
     Route: 065

REACTIONS (5)
  - Arthralgia [Recovered/Resolved]
  - Contraindicated product administered [Unknown]
  - Drug interaction [Unknown]
  - Drug ineffective [Unknown]
  - Sedation [Recovered/Resolved]
